FAERS Safety Report 17867371 (Version 5)
Quarter: 2022Q2

REPORT INFORMATION
  Report Type: Spontaneous
  Country: BR (occurrence: BR)
  Receive Date: 20200605
  Receipt Date: 20220628
  Transmission Date: 20220721
  Serious: Yes (Hospitalization, Other)
  Sender: FDA-Public Use
  Company Number: BR-GLAXOSMITHKLINE-BR2020AMR094144

PATIENT

DRUGS (5)
  1. NUCALA [Suspect]
     Active Substance: MEPOLIZUMAB
     Indication: Asthma
     Dosage: 100 MG
     Dates: start: 20190820
  2. ALBUTEROL [Suspect]
     Active Substance: ALBUTEROL
     Indication: Asthma
     Dosage: UNK, AS REQUIRED
     Dates: start: 20190820
  3. GLYCOPYRROLATE [Suspect]
     Active Substance: GLYCOPYRROLATE
     Indication: Product used for unknown indication
     Dosage: UNK UNK, QD
  4. PREDNISONE [Suspect]
     Active Substance: PREDNISONE
     Indication: Product used for unknown indication
     Dosage: 30 MG
  5. PREDNISONE [Suspect]
     Active Substance: PREDNISONE
     Dosage: 20 MG

REACTIONS (9)
  - Asthmatic crisis [Recovering/Resolving]
  - Pneumonia [Unknown]
  - Asthma [Unknown]
  - Pneumonitis [Unknown]
  - Fatigue [Not Recovered/Not Resolved]
  - Aphasia [Unknown]
  - Dyspnoea [Unknown]
  - Cough [Unknown]
  - Product dose omission issue [Unknown]
